FAERS Safety Report 25758093 (Version 1)
Quarter: 2025Q3

REPORT INFORMATION
  Report Type: Report from Study
  Country: VN (occurrence: VN)
  Receive Date: 20250903
  Receipt Date: 20250903
  Transmission Date: 20251020
  Serious: Yes (Other)
  Sender: TAKEDA
  Company Number: VN-JNJFOC-20250137463

PATIENT
  Age: 45 Year
  Sex: Female
  Weight: 50 kg

DRUGS (9)
  1. BORTEZOMIB [Suspect]
     Active Substance: BORTEZOMIB
     Indication: Plasma cell myeloma refractory
  2. DEXAMETHASONE [Suspect]
     Active Substance: DEXAMETHASONE
     Indication: Plasma cell myeloma refractory
  3. DARZALEX [Suspect]
     Active Substance: DARATUMUMAB
     Indication: Plasma cell myeloma refractory
  4. DARZALEX [Suspect]
     Active Substance: DARATUMUMAB
  5. DARZALEX [Suspect]
     Active Substance: DARATUMUMAB
  6. DARZALEX [Suspect]
     Active Substance: DARATUMUMAB
  7. DARZALEX [Suspect]
     Active Substance: DARATUMUMAB
  8. DARZALEX [Suspect]
     Active Substance: DARATUMUMAB
  9. DARZALEX [Suspect]
     Active Substance: DARATUMUMAB

REACTIONS (3)
  - Bone marrow transplant [Unknown]
  - Off label use [Unknown]
  - Product dose omission issue [Unknown]

NARRATIVE: CASE EVENT DATE: 20250101
